FAERS Safety Report 12186669 (Version 1)
Quarter: 2016Q1

REPORT INFORMATION
  Report Type: Report from Study
  Country: US (occurrence: US)
  Receive Date: 20160317
  Receipt Date: 20160317
  Transmission Date: 20160526
  Serious: Yes (Other)
  Sender: FDA-Public Use
  Company Number: US-ROCHE-1724512

PATIENT
  Age: 73 Year
  Sex: Male
  Weight: 77.18 kg

DRUGS (5)
  1. PRESERVISION AREDS 2 [Concomitant]
     Route: 065
  2. METAMUCIL [Concomitant]
     Active Substance: PLANTAGO SEED
     Route: 065
  3. TAXOL [Concomitant]
     Active Substance: PACLITAXEL
     Indication: ADENOCARCINOMA
     Route: 042
     Dates: start: 201504, end: 201509
  4. PROBIOTIC (ENZYMES, INC) [Concomitant]
     Route: 065
  5. HERCEPTIN [Suspect]
     Active Substance: TRASTUZUMAB
     Indication: ADENOCARCINOMA
     Route: 042
     Dates: start: 201504, end: 20160225

REACTIONS (6)
  - Optic nerve disorder [Not Recovered/Not Resolved]
  - Body height decreased [Not Recovered/Not Resolved]
  - Drug dose omission [Unknown]
  - Disease progression [Not Recovered/Not Resolved]
  - Off label use [Unknown]
  - Lymphadenopathy [Not Recovered/Not Resolved]

NARRATIVE: CASE EVENT DATE: 201602
